FAERS Safety Report 23555714 (Version 1)
Quarter: 2024Q1

REPORT INFORMATION
  Report Type: Spontaneous
  Country: US (occurrence: US)
  Receive Date: 20240222
  Receipt Date: 20240222
  Transmission Date: 20240410
  Serious: No
  Sender: FDA-Public Use
  Company Number: US-009507513-2402USA007786

PATIENT
  Age: 41 Year
  Sex: Male

DRUGS (3)
  1. WELIREG [Suspect]
     Active Substance: BELZUTIFAN
     Indication: Clear cell renal cell carcinoma
     Dosage: 120 MILLIGRAM, QD
     Route: 048
     Dates: start: 202207
  2. LENVATINIB MESYLATE [Suspect]
     Active Substance: LENVATINIB MESYLATE
     Indication: Renal cancer metastatic
     Dosage: UNK
     Dates: start: 2022, end: 2022
  3. LENVATINIB MESYLATE [Suspect]
     Active Substance: LENVATINIB MESYLATE
     Dosage: 10 MILLIGRAM, QD
     Route: 048
     Dates: start: 202304

REACTIONS (1)
  - Adverse drug reaction [Unknown]
